FAERS Safety Report 8977865 (Version 1)
Quarter: 2012Q4

REPORT INFORMATION
  Report Type: 
  Country: NO (occurrence: NO)
  Receive Date: 20121219
  Receipt Date: 20121219
  Transmission Date: 20130627
  Serious: Yes (Hospitalization)
  Sender: FDA-Public Use
  Company Number: NO-ASTRAZENECA-2012SE92538

PATIENT
  Age: 89 Year
  Sex: Male

DRUGS (15)
  1. SELO-ZOK [Suspect]
     Route: 048
  2. SELO-ZOK [Suspect]
     Route: 048
  3. KALEORID [Suspect]
  4. KALEORID [Suspect]
  5. TRIATEC [Suspect]
  6. CICLOCIL [Suspect]
     Indication: WOUND INFECTION
     Dates: start: 20121004, end: 20121012
  7. CICLOCIL [Suspect]
     Indication: THROMBOPHLEBITIS
     Dates: start: 20121004, end: 20121012
  8. SIMVASTATIN [Suspect]
  9. DIURAL [Suspect]
  10. FUCIDIN [Suspect]
     Dates: start: 20121004, end: 20121012
  11. HIRUDOID [Concomitant]
  12. PLAVIX [Concomitant]
  13. SOMAC [Concomitant]
  14. TRIOBE [Concomitant]
  15. NIFEREX [Concomitant]

REACTIONS (3)
  - Blood pressure decreased [Unknown]
  - Blood creatinine increased [Unknown]
  - Myoglobin blood increased [Unknown]
